FAERS Safety Report 5622552-6 (Version None)
Quarter: 2008Q1

REPORT INFORMATION
  Report Type: 
  Country: None (occurrence: None)
  Receive Date: 20080208
  Receipt Date: 20080208
  Transmission Date: 20080703
  Serious: Yes (Death)
  Sender: FDA-Public Use
  Company Number: None

PATIENT
  Age: 43 Year
  Sex: Male
  Weight: 83.9154 kg

DRUGS (3)
  1. EPZICOM [Suspect]
     Indication: HIV INFECTION
     Dosage: 800/160 MG ORALLY DAILY
     Route: 048
  2. KALETRA [Concomitant]
  3. VIREAD [Concomitant]

REACTIONS (9)
  - CARDIAC ARREST [None]
  - DIARRHOEA [None]
  - HEPATIC FAILURE [None]
  - HYPOTENSION [None]
  - MULTI-ORGAN FAILURE [None]
  - MYALGIA [None]
  - RASH [None]
  - RENAL FAILURE [None]
  - VOMITING [None]
